FAERS Safety Report 5189898-X (Version None)
Quarter: 2006Q4

REPORT INFORMATION
  Report Type: 
  Country: None (occurrence: None)
  Receive Date: 20061218
  Receipt Date: 20061207
  Transmission Date: 20070319
  Serious: Yes (Life-Threatening, Hospitalization)
  Sender: FDA-Public Use
  Company Number: SP-2006-003371

PATIENT
  Age: 55 Year
  Sex: Female

DRUGS (1)
  1. VOTUM [Suspect]
     Indication: HYPERTENSION
     Dosage: 20 MG ONCE PO
     Route: 048
     Dates: start: 20061105, end: 20061105

REACTIONS (8)
  - ASPIRATION [None]
  - CARDIOVASCULAR DISORDER [None]
  - COMA [None]
  - DEPRESSED LEVEL OF CONSCIOUSNESS [None]
  - MALAISE [None]
  - RESPIRATORY FAILURE [None]
  - SHOCK [None]
  - VOMITING [None]
